FAERS Safety Report 12216175 (Version 2)
Quarter: 2016Q2

REPORT INFORMATION
  Report Type: Spontaneous
  Country: US (occurrence: US)
  Receive Date: 20160329
  Receipt Date: 20160425
  Transmission Date: 20160815
  Serious: Yes (Other)
  Sender: FDA-Public Use
  Company Number: US-BEH-2016060399

PATIENT
  Sex: Female
  Weight: 59 kg

DRUGS (16)
  1. PHOSPHORUS [Concomitant]
     Active Substance: PHOSPHORUS
  2. EPIPEN [Concomitant]
     Active Substance: EPINEPHRINE
  3. LMX [Concomitant]
     Active Substance: LIDOCAINE
  4. FLONASE [Concomitant]
     Active Substance: FLUTICASONE PROPIONATE
  5. OMEGA 3 [Concomitant]
     Active Substance: OMEGA-3 FATTY ACIDS
  6. KRILL OIL [Concomitant]
     Active Substance: DIETARY SUPPLEMENT
  7. ZYFLAMEND [Concomitant]
  8. CALCIUM CARBONATE. [Concomitant]
     Active Substance: CALCIUM CARBONATE
  9. EPA [Concomitant]
  10. CENTRUM SILVER [Concomitant]
     Active Substance: MINERALS\VITAMINS
  11. CALCIUM+VITAMIN D [Concomitant]
     Active Substance: CALCIUM\VITAMIN D
  12. IRON [Concomitant]
     Active Substance: IRON
  13. MVI [Concomitant]
     Active Substance: VITAMINS
  14. HIZENTRA [Suspect]
     Active Substance: HUMAN IMMUNOGLOBULIN G
     Indication: IMMUNODEFICIENCY COMMON VARIABLE
     Dosage: START DATE: APPROX 2011
     Route: 058
  15. PROMIST [Concomitant]
  16. CHERRY EXTRACT [Concomitant]
     Active Substance: CHERRY EXTRACT

REACTIONS (1)
  - Tooth abscess [Recovered/Resolved]
